FAERS Safety Report 16407154 (Version 1)
Quarter: 2019Q2

REPORT INFORMATION
  Report Type: Spontaneous
  Country: US (occurrence: US)
  Receive Date: 20190608
  Receipt Date: 20190608
  Transmission Date: 20190711
  Serious: No
  Sender: FDA-Public Use
  Company Number: US-CELGENEUS-USA-20190511086

PATIENT
  Sex: Male

DRUGS (2)
  1. REVLIMID [Suspect]
     Active Substance: LENALIDOMIDE
     Indication: LYMPHOMA
     Dosage: 2.5 MILLIGRAM
     Route: 048
     Dates: start: 20190315
  2. REVLIMID [Suspect]
     Active Substance: LENALIDOMIDE
     Indication: MYELODYSPLASTIC SYNDROME

REACTIONS (3)
  - Adverse drug reaction [Unknown]
  - Pneumonia [Unknown]
  - Drug intolerance [Unknown]

NARRATIVE: CASE EVENT DATE: 2019
